FAERS Safety Report 23657719 (Version 1)
Quarter: 2024Q1

REPORT INFORMATION
  Report Type: Spontaneous
  Country: FR (occurrence: FR)
  Receive Date: 20240321
  Receipt Date: 20240321
  Transmission Date: 20240410
  Serious: Yes (Hospitalization)
  Sender: FDA-Public Use
  Company Number: None

PATIENT

DRUGS (19)
  1. ONCASPAR [Suspect]
     Active Substance: PEGASPARGASE
     Indication: T-cell type acute leukaemia
     Dosage: 1 DF
     Route: 042
     Dates: start: 20240130, end: 20240130
  2. ONCASPAR [Suspect]
     Active Substance: PEGASPARGASE
     Dosage: 1 DF
     Route: 042
     Dates: start: 20240102, end: 20240102
  3. ONCASPAR [Suspect]
     Active Substance: PEGASPARGASE
     Dosage: 1 DF
     Route: 042
     Dates: start: 20240123, end: 20240123
  4. ONCASPAR [Suspect]
     Active Substance: PEGASPARGASE
     Dosage: 1 DF
     Route: 042
     Dates: start: 20240116, end: 20240116
  5. ONCASPAR [Suspect]
     Active Substance: PEGASPARGASE
     Dosage: 1 DF
     Route: 042
     Dates: start: 20231002, end: 20231002
  6. ONCASPAR [Suspect]
     Active Substance: PEGASPARGASE
     Dosage: 1 DF
     Route: 042
     Dates: start: 20231019, end: 20231019
  7. METHOTREXATE (METHOTREXATE SODIUM) [Suspect]
     Active Substance: METHOTREXATE SODIUM
     Indication: T-cell type acute leukaemia
     Dosage: 1 DF
     Route: 042
     Dates: start: 20240102, end: 20240102
  8. METHOTREXATE (METHOTREXATE SODIUM) [Suspect]
     Active Substance: METHOTREXATE SODIUM
     Dosage: 1 DF
     Route: 042
     Dates: start: 20231012, end: 20231012
  9. METHOTREXATE (METHOTREXATE SODIUM) [Suspect]
     Active Substance: METHOTREXATE SODIUM
     Dosage: 1 DF
     Route: 042
     Dates: start: 20231026, end: 20231026
  10. METHOTREXATE (METHOTREXATE SODIUM) [Suspect]
     Active Substance: METHOTREXATE SODIUM
     Dosage: 1 DF
     Route: 042
     Dates: start: 20240110, end: 20240110
  11. METHOTREXATE (METHOTREXATE SODIUM) [Suspect]
     Active Substance: METHOTREXATE SODIUM
     Dosage: 1 DF
     Route: 042
     Dates: start: 20240130, end: 20240130
  12. METHOTREXATE (METHOTREXATE SODIUM) [Suspect]
     Active Substance: METHOTREXATE SODIUM
     Dosage: 1 DF
     Route: 042
     Dates: start: 20231102, end: 20231102
  13. METHOTREXATE (METHOTREXATE SODIUM) [Suspect]
     Active Substance: METHOTREXATE SODIUM
     Dosage: 1 DF
     Route: 042
     Dates: start: 20230927, end: 20230927
  14. METHOTREXATE (METHOTREXATE SODIUM) [Suspect]
     Active Substance: METHOTREXATE SODIUM
     Dosage: 1 DF
     Route: 042
     Dates: start: 20231115, end: 20231115
  15. PENTACARINAT [Concomitant]
     Active Substance: PENTAMIDINE ISETHIONATE
     Indication: Antifungal prophylaxis
     Dosage: 1 DF, QD
     Route: 065
  16. ONDANSETRON [Concomitant]
     Active Substance: ONDANSETRON
     Indication: Prophylaxis of nausea and vomiting
     Dosage: 8 MG; 1 TABLET EVERY 8 HOURS IF NAUSEA, MAXIMUM 3 TIMES PER DAY, SEE PRESCRIPTION FOR EXCEPTIONS.
     Route: 048
  17. TRAMADOL [Concomitant]
     Active Substance: TRAMADOL\TRAMADOL HYDROCHLORIDE
     Indication: Pain
     Dosage: 18 GTT, TID IF PAINFUL
     Route: 048
  18. PURINETHOL [Concomitant]
     Active Substance: MERCAPTOPURINE
     Indication: T-cell type acute leukaemia
     Dosage: 25MG/M?/D OR 1 HALF TABLET FROM MONDAY TO FRIDAY AND 1 TABLET ON SATURDAY AND SUNDAY. ONCE A DAY AT
     Route: 048
     Dates: start: 20240103, end: 20240219
  19. ACETAMINOPHEN [Concomitant]
     Active Substance: ACETAMINOPHEN
     Indication: Pain
     Dosage: 500 MG EVERY 6 H, IF NEEDED
     Route: 065

REACTIONS (2)
  - Acute kidney injury [Recovered/Resolved]
  - Overdose [Recovered/Resolved]

NARRATIVE: CASE EVENT DATE: 20240131
